FAERS Safety Report 5083898-6 (Version None)
Quarter: 2006Q3

REPORT INFORMATION
  Report Type: 
  Country: None (occurrence: None)
  Receive Date: 20060727
  Receipt Date: 20060411
  Transmission Date: 20061208
  Serious: Yes (Other)
  Sender: FDA-Public Use
  Company Number: 2006051617

PATIENT
  Age: 65 Year
  Sex: Female
  Weight: 83.4619 kg

DRUGS (12)
  1. LYRICA [Suspect]
     Indication: FIBROMYALGIA
     Dosage: 100 MG (50 MG, 2 IN 1 D), ORAL
     Route: 048
     Dates: start: 20060329
  2. TRAZODONE HCL [Suspect]
     Indication: FEELING OF RELAXATION
     Dates: end: 20060403
  3. MELATONIN (MELATONIN) [Suspect]
     Indication: FEELING OF RELAXATION
     Dates: end: 20060403
  4. VALERIAN ROOT (VALERIANA OFFICINALIS ROOT) [Suspect]
     Indication: FEELING OF RELAXATION
     Dates: end: 20060403
  5. DICYCLOMINE [Concomitant]
  6. LEVOTHYROXINE SODIUM [Concomitant]
  7. ATENOLOL [Concomitant]
  8. FEXOFENADINE HCL [Concomitant]
  9. MONTELUKAST SODIUM (MONTELUKAST SODIUM) [Concomitant]
  10. ZYRTEC [Concomitant]
  11. ORPHENADRINE CITRATE [Concomitant]
  12. ASPIRIN [Concomitant]

REACTIONS (4)
  - INSOMNIA [None]
  - RESTLESSNESS [None]
  - SOMNOLENCE [None]
  - THINKING ABNORMAL [None]
